FAERS Safety Report 14296777 (Version 1)
Quarter: 2017Q4

REPORT INFORMATION
  Report Type: Spontaneous
  Country: US (occurrence: US)
  Receive Date: 20171215
  Receipt Date: 20171215
  Transmission Date: 20180321
  Serious: Yes (Hospitalization)
  Sender: FDA-Public Use
  Company Number: None

PATIENT
  Age: 69 Year
  Sex: Male

DRUGS (1)
  1. WARFARIN [Suspect]
     Active Substance: WARFARIN
     Indication: ATRIAL FIBRILLATION
     Dates: start: 20170812, end: 20171023

REACTIONS (8)
  - Diverticulum [None]
  - Cardiac valve vegetation [None]
  - Duodenal polyp [None]
  - Haematochezia [None]
  - Duodenal ulcer haemorrhage [None]
  - Large intestinal ulcer haemorrhage [None]
  - Enterococcus test positive [None]
  - Haemorrhoids [None]

NARRATIVE: CASE EVENT DATE: 20171023
